FAERS Safety Report 6689820-0 (Version None)
Quarter: 2010Q2

REPORT INFORMATION
  Report Type: 
  Country: None (occurrence: None)
  Receive Date: 20100421
  Receipt Date: 20100412
  Transmission Date: 20101027
  Serious: Yes (Other)
  Sender: FDA-Public Use
  Company Number: US-ASTRAZENECA-2010SE01712

PATIENT
  Sex: Female

DRUGS (6)
  1. SEROQUEL [Suspect]
     Dosage: 100 MG TO 1000 MG
     Route: 048
     Dates: start: 20040312
  2. OXYBUTYNIN CHLORIDE [Concomitant]
     Route: 048
     Dates: start: 20061120
  3. CITALOPRAM HYDROBROMIDE [Concomitant]
     Dosage: TAKE 1 TABLET EVENRY MORNING AND 1 AND 1.5 TABLETS AT BEDTIME
     Route: 048
     Dates: start: 20061120
  4. TRAZODONE [Concomitant]
     Route: 048
     Dates: start: 20040324
  5. CLONAZEPAM [Concomitant]
     Route: 048
     Dates: start: 20040322
  6. LITHIUM CARBONATE [Concomitant]
     Route: 048
     Dates: start: 20040322

REACTIONS (2)
  - DIABETES MELLITUS [None]
  - NEPHROPATHY [None]
